FAERS Safety Report 4730168-9 (Version None)
Quarter: 2005Q3

REPORT INFORMATION
  Report Type: 
  Country: None (occurrence: None)
  Receive Date: 20050801
  Receipt Date: 20050722
  Transmission Date: 20060218
  Serious: Yes (Hospitalization)
  Sender: FDA-Public Use
  Company Number: US-GLAXOSMITHKLINE-A0567626A

PATIENT
  Age: 83 Year
  Sex: Female
  Weight: 54.5 kg

DRUGS (4)
  1. TOPOTECAN [Suspect]
     Indication: CERVIX CARCINOMA RECURRENT
     Dosage: .75MGM2 CYCLIC
     Route: 042
     Dates: start: 20000405
  2. CISPLATIN [Suspect]
     Indication: CERVIX CARCINOMA RECURRENT
     Dosage: 50MGM2 CYCLIC
     Route: 042
     Dates: start: 20000405
  3. LOPRESSOR [Concomitant]
  4. CALCIUM GLUCONATE [Concomitant]

REACTIONS (7)
  - ANAEMIA [None]
  - BLOOD CREATININE INCREASED [None]
  - BLOOD UREA INCREASED [None]
  - DEHYDRATION [None]
  - NAUSEA [None]
  - NEUTROPENIA [None]
  - VOMITING [None]
